FAERS Safety Report 13784720 (Version 3)
Quarter: 2019Q4

REPORT INFORMATION
  Report Type: Spontaneous
  Country: US (occurrence: US)
  Receive Date: 20170725
  Receipt Date: 20191018
  Transmission Date: 20200122
  Serious: Yes (Death, Other)
  Sender: FDA-Public Use
  Company Number: US-ASTRAZENECA-2017SE74645

PATIENT
  Sex: Male

DRUGS (13)
  1. NEXIUM [Suspect]
     Active Substance: ESOMEPRAZOLE MAGNESIUM
     Indication: GASTRIC PH DECREASED
     Route: 048
     Dates: start: 2012, end: 2015
  2. METHYLPREDNISOLONE. [Concomitant]
     Active Substance: METHYLPREDNISOLONE
     Dosage: 4.0MG UNKNOWN
     Dates: start: 20111004
  3. AMOXICILLIN. [Concomitant]
     Active Substance: AMOXICILLIN
     Dosage: 500.0MG UNKNOWN
     Dates: start: 20101103
  4. MELOXICAM. [Concomitant]
     Active Substance: MELOXICAM
     Dosage: 7.5MG UNKNOWN
     Dates: start: 20110310
  5. NIASPAN ER [Concomitant]
     Active Substance: NIACIN
     Dosage: 500.0MG UNKNOWN
     Dates: start: 20111102
  6. NAPROXEN. [Concomitant]
     Active Substance: NAPROXEN
     Dosage: 500.0MG UNKNOWN
     Dates: start: 20110920
  7. CRESTOR [Concomitant]
     Active Substance: ROSUVASTATIN CALCIUM
     Dosage: 10.0MG UNKNOWN
     Dates: start: 20110301
  8. GABAPENTIN. [Concomitant]
     Active Substance: GABAPENTIN
     Dosage: 300.0MG UNKNOWN
     Dates: start: 20131231
  9. NEXIUM [Suspect]
     Active Substance: ESOMEPRAZOLE MAGNESIUM
     Indication: GASTRIC PH DECREASED
     Dosage: 40 MG, UNKNOWN
     Route: 048
     Dates: start: 20150128
  10. TRILIPIX [Concomitant]
     Active Substance: FENOFIBRIC ACID
     Dosage: 135.0MG UNKNOWN
     Dates: start: 20110131
  11. ALLOPURINOL. [Concomitant]
     Active Substance: ALLOPURINOL
     Dosage: 100.0MG UNKNOWN
     Dates: start: 20111102
  12. LYRICA [Concomitant]
     Active Substance: PREGABALIN
     Dosage: 75.0MG UNKNOWN
     Dates: start: 20101214
  13. TAMSULOSIN HCL [Concomitant]
     Active Substance: TAMSULOSIN HYDROCHLORIDE
     Dosage: 0.4MG UNKNOWN
     Dates: start: 20140119

REACTIONS (6)
  - End stage renal disease [Unknown]
  - Death [Fatal]
  - Chronic kidney disease [Not Recovered/Not Resolved]
  - Renal failure [Not Recovered/Not Resolved]
  - Tubulointerstitial nephritis [Unknown]
  - Acute kidney injury [Unknown]
